FAERS Safety Report 7384618-2 (Version None)
Quarter: 2011Q1

REPORT INFORMATION
  Report Type: 
  Country: None (occurrence: None)
  Receive Date: 20110330
  Receipt Date: 20101103
  Transmission Date: 20110831
  Serious: No
  Sender: FDA-Public Use
  Company Number: US-BAYER-201023561BCC

PATIENT
  Sex: Female
  Weight: 27.211 kg

DRUGS (4)
  1. RID LICE KILLING SHAMPOO + CONDITION [Suspect]
     Dosage: BOTTLE COUNT 4OZ
  2. RID LICE KILLING SHAMPOO + CONDITION [Suspect]
     Dosage: BOTTLE COUNT UNKNOWN
  3. RID LICE KILLING SHAMPOO + CONDITION [Suspect]
     Dosage: BOTTLE COUNT 4OZ
  4. RID LICE KILLING SHAMPOO + CONDITION [Suspect]
     Indication: LICE INFESTATION
     Dosage: BOTTLE COUNT UNKNOWN

REACTIONS (1)
  - LICE INFESTATION [None]
